FAERS Safety Report 5283794-5 (Version None)
Quarter: 2007Q2

REPORT INFORMATION
  Report Type: 
  Country: None (occurrence: None)
  Receive Date: 20070402
  Receipt Date: 20070329
  Transmission Date: 20071010
  Serious: Yes (Disabling)
  Sender: FDA-Public Use
  Company Number: AU-BOEHRINGER INGELHEIM PHARMACEUTICALS, INC.-2007-BP-04449AU

PATIENT
  Sex: Female
  Weight: 65 kg

DRUGS (1)
  1. SPIRIVA [Suspect]
     Indication: RESPIRATORY DISORDER
     Route: 055
     Dates: start: 20060904, end: 20061011

REACTIONS (1)
  - MUSCLE SPASMS [None]
